FAERS Safety Report 9516548 (Version 1)
Quarter: 2013Q1

REPORT INFORMATION
  Report Type: Spontaneous
  Country: US (occurrence: None)
  Receive Date: 20130305
  Receipt Date: 20130305
  Transmission Date: 20140127
  Serious: Yes (Other)
  Sender: FDA-Public Use
  Company Number: 163-21880-12080612

PATIENT
  Age: 65 Year
  Sex: Female
  Weight: 79.38 kg

DRUGS (20)
  1. REVLIMID (LENALIDOMIDE) (25 MILLIGRAM, CAPSULES) [Suspect]
     Indication: PLASMA CELL MYELOMA
     Dosage: 25 MG, 1 IN 1 D, PO
     Route: 048
     Dates: start: 20100315, end: 20110315
  2. ASA (ACETYLSALICYLIC ACID) [Concomitant]
  3. CRESTOR (ROSUVASTATIN) [Concomitant]
  4. METOPROLOL (METOPROLOL) [Concomitant]
  5. ZOLPIDEM (ZOLPIDEM) [Concomitant]
  6. ACYCLOVIR (ACICLOVIR) (TABLETS) [Concomitant]
  7. ALPRAZOLAM (ALPRAZOLAM) [Concomitant]
  8. DEXAMETHAZONE (DEXAMETHASONE) (4 MILLIGRAM, UNKNOWN) [Concomitant]
  9. CALCIUM + VITAMIN D (LEKOVIT CA) (TABLETS) [Concomitant]
  10. FISH OIL (FISH OIL) (TABLETS) [Concomitant]
  11. FOLIC ACID (FOLIC ACID) (CAPSULES) [Concomitant]
  12. GLUCOSAMINE CHONDROTIN (GLUCOSAMINE W/ CHONDROITIN SULFATE) (TABLETS) [Concomitant]
  13. HYDROCODONE/ ACETAMINOPHEN (REMEDEINE) (TABLETS) [Concomitant]
  14. MAGNESIUM (MAGNESIUM) (CAPSULES) [Concomitant]
  15. MELOXICAM (MELOXICAM) (TABLETS) [Concomitant]
  16. MULTIVITAMINS (MULTIVITAMINS) (TABLETS) [Concomitant]
  17. VITAMIN C (ASCORBIC ACID) (TABLETS) [Concomitant]
  18. NITROFURANTIN MACROCRYSTALS (TABLETS) [Concomitant]
  19. ZINC (ZINC) (CAPSULES) [Concomitant]
  20. ZOLPIDEM TARTRATE (ZOLPIDEM TARTRATE) (TABLETS) [Concomitant]

REACTIONS (3)
  - Jugular vein thrombosis [None]
  - Urinary tract infection [None]
  - Vision blurred [None]
